FAERS Safety Report 24653498 (Version 1)
Quarter: 2024Q4

REPORT INFORMATION
  Report Type: Spontaneous
  Country: US (occurrence: US)
  Receive Date: 20241122
  Receipt Date: 20241122
  Transmission Date: 20250115
  Serious: No
  Sender: CARDINAL HEALTH
  Company Number: US-Cardinal Health 414-NPHS-AE-24-38

PATIENT
  Age: 48 Year
  Sex: Female
  Weight: 97.1 kg

DRUGS (1)
  1. FLUDEOXYGLUCOSE F-18 [Suspect]
     Active Substance: FLUDEOXYGLUCOSE F-18
     Indication: Positron emission tomogram
     Dosage: EXPIRES 7/25/2024 @ 15:16
     Route: 042
     Dates: start: 20240725, end: 20240725

REACTIONS (3)
  - Vomiting [Recovered/Resolved]
  - Urticaria [Recovered/Resolved]
  - Chest X-ray abnormal [Unknown]

NARRATIVE: CASE EVENT DATE: 20240725
